FAERS Safety Report 14301515 (Version 1)
Quarter: 2017Q4

REPORT INFORMATION
  Report Type: Spontaneous
  Country: US (occurrence: US)
  Receive Date: 20171218
  Receipt Date: 20171218
  Transmission Date: 20180321
  Serious: No
  Sender: FDA-Public Use
  Company Number: None

PATIENT
  Age: 52 Year
  Sex: Female

DRUGS (15)
  1. REPATHA [Suspect]
     Active Substance: EVOLOCUMAB
     Indication: TYPE IIA HYPERLIPIDAEMIA
     Dosage: ?          OTHER FREQUENCY:EVERY 2 WEEKS;?
     Route: 058
     Dates: start: 20171106, end: 20171218
  2. AMLODIPINE [Concomitant]
     Active Substance: AMLODIPINE BESYLATE
  3. NORCO [Concomitant]
     Active Substance: ACETAMINOPHEN\HYDROCODONE BITARTRATE
  4. ROSUVASTATIN. [Concomitant]
     Active Substance: ROSUVASTATIN
  5. TOPIRAMATE. [Concomitant]
     Active Substance: TOPIRAMATE
  6. INSULIN [Concomitant]
     Active Substance: INSULIN NOS
  7. SPIRONOLACTONE. [Concomitant]
     Active Substance: SPIRONOLACTONE
  8. VALSARTAN. [Concomitant]
     Active Substance: VALSARTAN
  9. SOMA [Concomitant]
     Active Substance: CARISOPRODOL
  10. NITROGLYCERIN. [Concomitant]
     Active Substance: NITROGLYCERIN
  11. CLOPIDOGREL [Concomitant]
     Active Substance: CLOPIDOGREL BISULFATE
  12. GLIPIZIDE. [Concomitant]
     Active Substance: GLIPIZIDE
  13. METOPROLOL. [Concomitant]
     Active Substance: METOPROLOL
  14. CLONIDINE. [Concomitant]
     Active Substance: CLONIDINE
  15. ASPIRIN. [Concomitant]
     Active Substance: ASPIRIN

REACTIONS (2)
  - Pruritus [None]
  - Rash [None]

NARRATIVE: CASE EVENT DATE: 20171218
